FAERS Safety Report 5696013-2 (Version None)
Quarter: 2008Q2

REPORT INFORMATION
  Report Type: 
  Country: None (occurrence: None)
  Receive Date: 20080407
  Receipt Date: 20080327
  Transmission Date: 20081010
  Serious: Yes (Hospitalization)
  Sender: FDA-Public Use
  Company Number: A0685740A

PATIENT
  Age: 15 Year
  Sex: Male

DRUGS (15)
  1. LAMICTAL [Suspect]
     Indication: DRUG USE FOR UNKNOWN INDICATION
     Dosage: 25MG UNKNOWN
     Route: 065
     Dates: start: 20070201
  2. PAXIL [Suspect]
     Indication: DRUG USE FOR UNKNOWN INDICATION
     Route: 048
     Dates: start: 20000101
  3. ZYPREXA [Suspect]
     Indication: BIPOLAR DISORDER
     Dosage: 15MG PER DAY
     Route: 048
     Dates: start: 20020101
  4. SEROQUEL [Suspect]
     Indication: DRUG USE FOR UNKNOWN INDICATION
     Route: 065
  5. RISPERIDONE [Concomitant]
     Indication: DRUG USE FOR UNKNOWN INDICATION
     Dates: start: 20000101
  6. CLOZAPINE [Concomitant]
     Dates: start: 20070201
  7. CARBAMAZEPINE [Concomitant]
  8. CLONAZEPAM [Concomitant]
  9. ZIPRASIDONE HCL [Concomitant]
     Dates: start: 20070401
  10. CLONIDINE HCL [Concomitant]
  11. ZOLPIDEM [Concomitant]
  12. ARIPIPRAZOLE [Concomitant]
  13. DIPHENHYDRAMINE HCL [Concomitant]
     Indication: SLEEP DISORDER
  14. OLANZAPINE [Concomitant]
     Dosage: 2.5MG THREE TIMES PER DAY
  15. GUANFACINE HYDROCHLORIDE [Concomitant]

REACTIONS (33)
  - ABASIA [None]
  - ABDOMINAL DISTENSION [None]
  - ABNORMAL BEHAVIOUR [None]
  - AGGRESSION [None]
  - AGITATION [None]
  - AMNESIA [None]
  - BURNOUT SYNDROME [None]
  - CONVULSION [None]
  - DRUG INEFFECTIVE [None]
  - DRY MOUTH [None]
  - DYSKINESIA [None]
  - DYSPEPSIA [None]
  - DYSTONIA [None]
  - EATING DISORDER [None]
  - FATIGUE [None]
  - GAIT DISTURBANCE [None]
  - HAEMOPTYSIS [None]
  - HYPOKINESIA [None]
  - HYPOTONIA [None]
  - ILL-DEFINED DISORDER [None]
  - INCONTINENCE [None]
  - MANIA [None]
  - MOVEMENT DISORDER [None]
  - MUSCULOSKELETAL STIFFNESS [None]
  - PHOTOPSIA [None]
  - PNEUMONIA [None]
  - POSTURING [None]
  - RASH MACULAR [None]
  - SCREAMING [None]
  - SOMNOLENCE [None]
  - SUICIDAL IDEATION [None]
  - TREMOR [None]
  - WEIGHT INCREASED [None]
